FAERS Safety Report 7043884-3 (Version None)
Quarter: 2010Q4

REPORT INFORMATION
  Report Type: 
  Country: None (occurrence: None)
  Receive Date: 20101013
  Receipt Date: 20101005
  Transmission Date: 20110411
  Serious: Yes (Hospitalization)
  Sender: FDA-Public Use
  Company Number: FR-PFIZER INC-2010125804

PATIENT
  Age: 81 Year
  Sex: Female

DRUGS (14)
  1. TAHOR [Suspect]
     Indication: HYPERTRIGLYCERIDAEMIA
     Dosage: UNK
     Route: 048
     Dates: end: 20100816
  2. ARZERRA [Suspect]
     Indication: NON-HODGKIN'S LYMPHOMA
     Dosage: 1 G AT DAY 1
     Route: 042
     Dates: start: 20100816, end: 20100816
  3. DOXORUBICIN EBEWE [Suspect]
     Indication: NON-HODGKIN'S LYMPHOMA
     Dosage: 40.5 MG (25MG/M2) AT DAY1
     Route: 042
     Dates: start: 20100816, end: 20100816
  4. VINCRISTINE [Suspect]
     Indication: NON-HODGKIN'S LYMPHOMA
     Dosage: 1 MG AT DAY 1
     Route: 042
     Dates: start: 20100816, end: 20100816
  5. ENDOXAN [Suspect]
     Indication: NON-HODGKIN'S LYMPHOMA
     Dosage: 650 MG (400MG/M2) AT DAY 1
     Route: 042
     Dates: start: 20100816, end: 20100816
  6. METHYLPREDNISOLONE [Suspect]
     Indication: NON-HODGKIN'S LYMPHOMA
     Dosage: 65 MG (40MG/M2) AT DAY 1
     Route: 042
     Dates: start: 20100816, end: 20100816
  7. PREDNISOLONE [Suspect]
     Indication: NON-HODGKIN'S LYMPHOMA
     Dosage: 65 MG FROM DAY 2 TO DAY5
     Dates: start: 20100817, end: 20100820
  8. GAVISCON [Concomitant]
     Dosage: UNK
  9. TETRAZEPAM [Concomitant]
     Dosage: ONE TABLET IN THE EVENING
  10. NEXIUM [Concomitant]
     Dosage: 20 MG
  11. FORLAX [Concomitant]
     Dosage: UNK
  12. LYRICA [Concomitant]
     Dosage: 3 DF PER DAY
  13. DOLIPRANE [Concomitant]
     Dosage: UNK
  14. ALLOPURINOL [Concomitant]
     Dosage: 300 MG DAILY DOSE

REACTIONS (1)
  - PANCREATITIS ACUTE [None]
